FAERS Safety Report 15731858 (Version 3)
Quarter: 2019Q4

REPORT INFORMATION
  Report Type: Report from Study
  Country: US (occurrence: US)
  Receive Date: 20181217
  Receipt Date: 20191108
  Transmission Date: 20200122
  Serious: No
  Sender: FDA-Public Use
  Company Number: US-SA-2018SA343918

PATIENT
  Age: 51 Year
  Sex: Male

DRUGS (16)
  1. MONTELUKAST SODIUM. [Concomitant]
     Active Substance: MONTELUKAST SODIUM
  2. DIPHENHYDRAMINE. [Concomitant]
     Active Substance: DIPHENHYDRAMINE
  3. LINZESS [Concomitant]
     Active Substance: LINACLOTIDE
  4. OLOPATADINE. [Concomitant]
     Active Substance: OLOPATADINE
  5. TELMISARTAN. [Concomitant]
     Active Substance: TELMISARTAN
  6. LIDOCAINE. [Concomitant]
     Active Substance: LIDOCAINE
  7. CLOBETASOL PROPIONATE. [Concomitant]
     Active Substance: CLOBETASOL PROPIONATE
  8. DUPILUMAB [Suspect]
     Active Substance: DUPILUMAB
     Indication: DERMATITIS ATOPIC
     Dosage: 300 MG, QOW
     Dates: start: 20180401
  9. OFLOXACIN. [Concomitant]
     Active Substance: OFLOXACIN
  10. CALCIPOTRIENE. [Concomitant]
     Active Substance: CALCIPOTRIENE
  11. DUPILUMAB [Suspect]
     Active Substance: DUPILUMAB
     Dosage: 600 MG, Q3W
     Route: 058
  12. METFORMIN HCL [Concomitant]
     Active Substance: METFORMIN HYDROCHLORIDE
  13. HYDROXYZINE PAMOATE. [Concomitant]
     Active Substance: HYDROXYZINE PAMOATE
  14. DUPILUMAB [Suspect]
     Active Substance: DUPILUMAB
     Dosage: 300 MG,QOW
     Route: 058
     Dates: start: 201805
  15. ROSUVASTATIN CALCIUM. [Concomitant]
     Active Substance: ROSUVASTATIN CALCIUM
  16. DOXEPIN [Concomitant]
     Active Substance: DOXEPIN

REACTIONS (10)
  - Eye discharge [Unknown]
  - Vision blurred [Unknown]
  - Lacrimation increased [Unknown]
  - Skin exfoliation [Unknown]
  - Pruritus [Unknown]
  - Conjunctivitis [Unknown]
  - Eyelid margin crusting [Unknown]
  - Dry eye [Unknown]
  - Product dose omission [Unknown]
  - Product prescribing error [Unknown]
